FAERS Safety Report 12544737 (Version 1)
Quarter: 2016Q3

REPORT INFORMATION
  Report Type: Report from Study
  Country: US (occurrence: US)
  Receive Date: 20160711
  Receipt Date: 20160711
  Transmission Date: 20161109
  Serious: Yes (Other)
  Sender: FDA-Public Use
  Company Number: US-SA-2016SA125642

PATIENT
  Age: 56 Year
  Sex: Female

DRUGS (2)
  1. TOUJEO [Suspect]
     Active Substance: INSULIN GLARGINE
     Indication: DIABETES MELLITUS
     Dosage: DOSE:40 UNIT(S)
     Route: 065
  2. SOLOSTAR [Concomitant]
     Active Substance: DEVICE

REACTIONS (10)
  - Somnolence [Recovered/Resolved]
  - Neuromyopathy [Recovered/Resolved]
  - Hypersensitivity [Recovered/Resolved]
  - Blood glucose increased [Recovered/Resolved]
  - Fatigue [Recovered/Resolved]
  - Lethargy [Recovered/Resolved]
  - Peripheral swelling [Recovered/Resolved]
  - Mental impairment [Recovered/Resolved]
  - Fall [Recovered/Resolved]
  - Neuropathy peripheral [Recovered/Resolved]
